FAERS Safety Report 6404523-5 (Version None)
Quarter: 2009Q4

REPORT INFORMATION
  Report Type: 
  Country: None (occurrence: None)
  Receive Date: 20091016
  Receipt Date: 20091005
  Transmission Date: 20100525
  Serious: Yes (Hospitalization)
  Sender: FDA-Public Use
  Company Number: PHHY2009JP41811

PATIENT
  Age: 77 Year
  Sex: Female

DRUGS (2)
  1. DICLOFENAC SODIUM [Suspect]
     Indication: HERPES ZOSTER
     Dosage: UNK
     Route: 048
     Dates: start: 20080801
  2. VALACYCLOVIR HCL [Concomitant]
     Indication: HERPES ZOSTER
     Dosage: 500 MG, 6 TAB/DAY
     Route: 048
     Dates: start: 20080801

REACTIONS (8)
  - BLOOD CREATININE INCREASED [None]
  - CALCULUS URETERIC [None]
  - DYSPNOEA [None]
  - ELECTROLYTE IMBALANCE [None]
  - HYDRONEPHROSIS [None]
  - MALAISE [None]
  - ORAL DISCOMFORT [None]
  - RENAL FAILURE ACUTE [None]
